FAERS Safety Report 5369892-6 (Version None)
Quarter: 2007Q2

REPORT INFORMATION
  Report Type: 
  Country: None (occurrence: None)
  Receive Date: 20070621
  Receipt Date: 20070607
  Transmission Date: 20071010
  Serious: Yes (Hospitalization)
  Sender: FDA-Public Use
  Company Number: 2006P1000536

PATIENT
  Age: 40 Year
  Sex: Male

DRUGS (1)
  1. BUSULFAN (BUSULFAN) [Suspect]
     Indication: STEM CELL TRANSPLANT
     Dosage: 216 MG; QD; IV
     Dates: start: 20061012, end: 20061016

REACTIONS (6)
  - ACUTE GRAFT VERSUS HOST DISEASE [None]
  - BONE MARROW TRANSPLANT REJECTION [None]
  - GRAFT VERSUS HOST DISEASE [None]
  - PERITONITIS [None]
  - TUMOUR LYSIS SYNDROME [None]
  - VENOOCCLUSIVE LIVER DISEASE [None]
